FAERS Safety Report 5904702-7 (Version None)
Quarter: 2008Q4

REPORT INFORMATION
  Report Type: 
  Country: None (occurrence: None)
  Receive Date: 20081001
  Receipt Date: 20080919
  Transmission Date: 20090506
  Serious: Yes (Hospitalization)
  Sender: FDA-Public Use
  Company Number: US-AMGEN-US305272

PATIENT
  Sex: Male
  Weight: 77 kg

DRUGS (17)
  1. PANITUMUMAB [Suspect]
     Indication: COLORECTAL CANCER
     Route: 042
     Dates: start: 20080722
  2. GLUCOPHAGE [Concomitant]
  3. NEXIUM [Concomitant]
  4. POTASSIUM CHLORIDE [Concomitant]
     Route: 048
  5. LISINOPRIL [Concomitant]
  6. LASIX [Concomitant]
  7. ZOCOR [Concomitant]
  8. TOPROL-XL [Concomitant]
  9. IRON SULFATETHIAMIN COMPOUND TAB [Concomitant]
  10. ARICEPT [Concomitant]
  11. CLONAZEPAM [Concomitant]
  12. MAGNESIUM SULFATE [Concomitant]
  13. CARDURA [Concomitant]
  14. IRINOTECAN HCL [Concomitant]
     Route: 042
     Dates: start: 20080722
  15. FLUOROURACIL [Concomitant]
     Route: 040
     Dates: start: 20080722
  16. FLUOROURACIL [Concomitant]
     Route: 042
     Dates: start: 20080722
  17. LEUCOVORIN CALCIUM [Concomitant]
     Route: 042
     Dates: start: 20080722

REACTIONS (2)
  - CLOSTRIDIAL INFECTION [None]
  - COLITIS [None]
